FAERS Safety Report 11149649 (Version 1)
Quarter: 2015Q2

REPORT INFORMATION
  Report Type: Spontaneous
  Country: US (occurrence: US)
  Receive Date: 20150529
  Receipt Date: 20150529
  Transmission Date: 20150821
  Serious: Yes (Other)
  Sender: FDA-Public Use
  Company Number: US-AMGEN-USASP2015051392

PATIENT
  Age: 54 Year
  Sex: Female

DRUGS (1)
  1. PROLIA [Suspect]
     Active Substance: DENOSUMAB
     Indication: PRODUCT USED FOR UNKNOWN INDICATION
     Dosage: UNK
     Route: 065
     Dates: start: 201412

REACTIONS (10)
  - Myalgia [Recovering/Resolving]
  - Bone contusion [Unknown]
  - Groin pain [Recovering/Resolving]
  - Pain in jaw [Recovering/Resolving]
  - Intervertebral disc protrusion [Unknown]
  - Fibromyalgia [Recovering/Resolving]
  - Spinal column stenosis [Unknown]
  - Hiatus hernia [Unknown]
  - Tooth extraction [Unknown]
  - Rash [Unknown]
